FAERS Safety Report 6238860-4 (Version None)
Quarter: 2009Q2

REPORT INFORMATION
  Report Type: 
  Country: None (occurrence: None)
  Receive Date: 20090617
  Receipt Date: 20090617
  Transmission Date: 20091009
  Serious: Yes (Hospitalization)
  Sender: FDA-Public Use
  Company Number: None

PATIENT
  Age: 48 Year
  Sex: Male
  Weight: 58.96 kg

DRUGS (2)
  1. ZOSYN [Suspect]
     Indication: ABDOMINAL CAVITY DRAINAGE
     Dosage: 2.5GM 8HRS IV
     Route: 042
     Dates: start: 20090518, end: 20090605
  2. ZOSYN [Suspect]
     Indication: ANASTOMOTIC LEAK
     Dosage: 2.5GM 8HRS IV
     Route: 042
     Dates: start: 20090518, end: 20090605

REACTIONS (1)
  - AGRANULOCYTOSIS [None]
